FAERS Safety Report 10895921 (Version 2)
Quarter: 2015Q2

REPORT INFORMATION
  Report Type: Spontaneous
  Country: IT (occurrence: IT)
  Receive Date: 20150307
  Receipt Date: 20150402
  Transmission Date: 20150821
  Serious: Yes (Death, Other)
  Sender: FDA-Public Use
  Company Number: IT-BRISTOL-MYERS SQUIBB COMPANY-BMS-2015-012426

PATIENT
  Age: 65 Year
  Sex: Male

DRUGS (5)
  1. IRINOTECAN [Suspect]
     Active Substance: IRINOTECAN
     Indication: COLON CANCER
     Route: 065
  2. CETUXIMAB [Suspect]
     Active Substance: CETUXIMAB
     Indication: COLON CANCER
     Route: 065
  3. BETAMETHASONE [Suspect]
     Active Substance: BETAMETHASONE
     Indication: ECTHYMA
     Dosage: 2 MG, QD
     Route: 048
  4. LEVOFOLINATE CALCIUM [Suspect]
     Active Substance: LEUCOVORIN CALCIUM
     Indication: COLON CANCER
     Route: 065
  5. 5-FU                               /00098801/ [Suspect]
     Active Substance: FLUOROURACIL
     Indication: COLON CANCER
     Dosage: UNK
     Route: 065
     Dates: start: 201302

REACTIONS (5)
  - Malaise [Unknown]
  - Death [Fatal]
  - Tumour marker increased [Unknown]
  - Diabetes mellitus [Unknown]
  - Ecthyma [Unknown]
